FAERS Safety Report 21412105 (Version 3)
Quarter: 2024Q4

REPORT INFORMATION
  Report Type: Report from Study
  Country: CA (occurrence: CA)
  Receive Date: 20221005
  Receipt Date: 20241007
  Transmission Date: 20250114
  Serious: Yes (Other)
  Sender: TAKEDA
  Company Number: CA-TAKEDA-2022TUS052621

PATIENT
  Sex: Female

DRUGS (4)
  1. VEDOLIZUMAB [Suspect]
     Active Substance: VEDOLIZUMAB
     Indication: Colitis ulcerative
     Dosage: 300 MILLIGRAM
     Route: 042
     Dates: start: 20200330
  2. VEDOLIZUMAB [Suspect]
     Active Substance: VEDOLIZUMAB
     Indication: Colitis ulcerative
     Dosage: 108 MILLIGRAM, Q2WEEKS
     Route: 058
     Dates: start: 202212
  3. CIPRALEX [Concomitant]
     Active Substance: ESCITALOPRAM OXALATE
     Dosage: UNK
  4. ZOLPIDEM TARTRATE [Concomitant]
     Active Substance: ZOLPIDEM TARTRATE
     Dosage: UNK

REACTIONS (12)
  - Colitis ulcerative [Unknown]
  - Abortion spontaneous [Unknown]
  - Haematochezia [Unknown]
  - Ligament sprain [Unknown]
  - Lumbar hernia [Unknown]
  - Pain [Unknown]
  - Stress [Unknown]
  - Menstruation delayed [Unknown]
  - Mucous stools [Unknown]
  - Abdominal pain [Unknown]
  - Fatigue [Unknown]
  - Pregnancy [Recovered/Resolved]
